FAERS Safety Report 9456400 (Version 2)
Quarter: 2013Q3

REPORT INFORMATION
  Report Type: Spontaneous
  Country: JP (occurrence: JP)
  Receive Date: 20130813
  Receipt Date: 20130911
  Transmission Date: 20140515
  Serious: Yes (Hospitalization)
  Sender: FDA-Public Use
  Company Number: JP-BAYER-2013-095489

PATIENT
  Age: 60 Year
  Sex: Female

DRUGS (13)
  1. GLUCOBAY [Suspect]
     Indication: DIABETES MELLITUS
     Dosage: 50 MG, TID
     Route: 048
     Dates: start: 20130610, end: 2013
  2. SIGMART [Concomitant]
     Route: 048
  3. BAYASPIRIN [Concomitant]
     Dosage: UNK
     Route: 048
  4. ALFAROL [Concomitant]
     Route: 048
  5. ARTIST [Concomitant]
     Route: 048
  6. LASIX [Concomitant]
  7. DIOVAN [Concomitant]
     Route: 048
  8. ADALAT CR [Concomitant]
     Route: 048
  9. TAKEPRON [Concomitant]
  10. FERROMIA [Concomitant]
     Route: 048
  11. FOSRENOL [Concomitant]
     Route: 048
  12. PURSENNID [Concomitant]
     Route: 048
  13. HYPEN [Concomitant]
     Route: 048

REACTIONS (1)
  - Pyrexia [Recovered/Resolved]
